FAERS Safety Report 6286375-X (Version None)
Quarter: 2009Q3

REPORT INFORMATION
  Report Type: 
  Country: None (occurrence: None)
  Receive Date: 20090728
  Receipt Date: 20090717
  Transmission Date: 20100115
  Serious: Yes (Hospitalization)
  Sender: FDA-Public Use
  Company Number: CA-JNJFOC-20090706679

PATIENT
  Sex: Female
  Weight: 71 kg

DRUGS (2)
  1. REMICADE [Suspect]
     Dosage: THIRD INFUSION
     Route: 042
  2. REMICADE [Suspect]
     Indication: ANKYLOSING SPONDYLITIS
     Dosage: 2 INFUSIONS ON UNSPECIFIED DATES
     Route: 042

REACTIONS (7)
  - DYSPHAGIA [None]
  - DYSPNOEA [None]
  - HOT FLUSH [None]
  - INFUSION RELATED REACTION [None]
  - NAUSEA [None]
  - PALPITATIONS [None]
  - RASH GENERALISED [None]
